FAERS Safety Report 6571112-1 (Version None)
Quarter: 2010Q1

REPORT INFORMATION
  Report Type: 
  Country: None (occurrence: None)
  Receive Date: 20100204
  Receipt Date: 20100125
  Transmission Date: 20100710
  Serious: Yes (Other)
  Sender: FDA-Public Use
  Company Number: GB-ABBOTT-09P-167-0616057-00

PATIENT
  Sex: Female

DRUGS (4)
  1. HUMIRA [Suspect]
     Indication: CROHN'S DISEASE
     Route: 058
  2. METHOTREXATE [Concomitant]
     Indication: CROHN'S DISEASE
     Route: 048
  3. ASACOL [Concomitant]
     Indication: CROHN'S DISEASE
     Route: 048
  4. PREDNISOLONE [Concomitant]
     Indication: CROHN'S DISEASE
     Route: 048

REACTIONS (3)
  - ANAL ABSCESS [None]
  - H1N1 INFLUENZA [None]
  - MALAISE [None]
